FAERS Safety Report 6272817-2 (Version None)
Quarter: 2009Q3

REPORT INFORMATION
  Report Type: 
  Country: None (occurrence: None)
  Receive Date: 20090717
  Receipt Date: 20090708
  Transmission Date: 20100115
  Serious: Yes (Hospitalization)
  Sender: FDA-Public Use
  Company Number: NZ-ASTRAZENECA-2009SE04261

PATIENT
  Age: 18801 Day
  Sex: Male

DRUGS (3)
  1. METOPROLOL TARTRATE [Suspect]
     Route: 048
     Dates: end: 20000916
  2. PLENDIL [Suspect]
     Route: 048
     Dates: end: 20000916
  3. CITALOPRAM HYDROBROMIDE [Suspect]
     Route: 048
     Dates: end: 20000916

REACTIONS (6)
  - BRADYCARDIA [None]
  - DYSPNOEA [None]
  - FATIGUE [None]
  - MUSCULOSKELETAL PAIN [None]
  - NECK PAIN [None]
  - ORTHOSTATIC HYPOTENSION [None]
